FAERS Safety Report 8923810 (Version 1)
Quarter: 2012Q4

REPORT INFORMATION
  Report Type: 
  Country: US (occurrence: US)
  Receive Date: 20121126
  Receipt Date: 20121126
  Transmission Date: 20130627
  Serious: Yes (Other)
  Sender: FDA-Public Use
  Company Number: US-B.I. PHARMACEUTICALS,INC./RIDGEFIELD-2012-BI-00821BP

PATIENT
  Sex: Male
  Weight: 98 kg

DRUGS (8)
  1. PRADAXA [Suspect]
     Indication: ATRIAL FIBRILLATION
     Dosage: 300 mg
     Route: 048
     Dates: start: 2010, end: 201209
  2. CALCIUM [Concomitant]
     Dosage: 1200 mg
     Route: 048
  3. D3 VITAMIN [Concomitant]
     Dosage: 1000 U
     Route: 048
  4. DILTIAZEM [Concomitant]
     Dosage: 240 mg
     Route: 048
  5. METFORMIN [Concomitant]
     Dosage: 2000 mg
     Route: 048
  6. PRAVASTATIN [Concomitant]
     Dosage: 80 mg
     Route: 048
  7. XARELTO [Concomitant]
     Dosage: 20 mg
     Route: 048
     Dates: start: 201210
  8. FISH OIL [Concomitant]
     Dosage: 2000 mg
     Route: 048
     Dates: start: 2009

REACTIONS (2)
  - Prostate cancer recurrent [Recovered/Resolved]
  - Haemarthrosis [Not Recovered/Not Resolved]
